FAERS Safety Report 8223455-3 (Version None)
Quarter: 2012Q1

REPORT INFORMATION
  Report Type: 
  Country: None (occurrence: None)
  Receive Date: 20120321
  Receipt Date: 20120312
  Transmission Date: 20120608
  Serious: Yes (Other)
  Sender: FDA-Public Use
  Company Number: JP-TEVA-323221ISR

PATIENT
  Age: 72 Year
  Sex: Male

DRUGS (3)
  1. CISPLATIN [Suspect]
     Indication: NEOPLASM MALIGNANT
  2. CISPLATIN [Suspect]
     Indication: NEOPLASM MALIGNANT
     Dosage: 10 MILLIGRAM;
     Route: 042
  3. TAXOTERE [Suspect]
     Indication: NEOPLASM MALIGNANT

REACTIONS (1)
  - LIVER DISORDER [None]
